FAERS Safety Report 24948409 (Version 1)
Quarter: 2025Q1

REPORT INFORMATION
  Report Type: Spontaneous
  Country: FI (occurrence: FI)
  Receive Date: 20250210
  Receipt Date: 20250210
  Transmission Date: 20250408
  Serious: Yes (Other)
  Sender: DAIICHI
  Company Number: FI-DSJP-DS-2025-122495-FI

PATIENT
  Age: 69 Year
  Sex: Female

DRUGS (1)
  1. ENHERTU [Suspect]
     Active Substance: FAM-TRASTUZUMAB DERUXTECAN-NXKI
     Indication: Hormone receptor positive HER2 negative breast cancer
     Route: 065

REACTIONS (3)
  - Cytopenia [Unknown]
  - Disease progression [Unknown]
  - Drug ineffective [Unknown]
